FAERS Safety Report 17316563 (Version 2)
Quarter: 2020Q2

REPORT INFORMATION
  Report Type: Report from Study
  Country: US (occurrence: US)
  Receive Date: 20200124
  Receipt Date: 20200413
  Transmission Date: 20200713
  Serious: Yes (Death, Hospitalization, Other)
  Sender: FDA-Public Use
  Company Number: US-TEVA-2020-US-1174076

PATIENT
  Age: 68 Year
  Sex: Male

DRUGS (1)
  1. CLOZAPINE TEVA [Suspect]
     Active Substance: CLOZAPINE
     Route: 048

REACTIONS (5)
  - Respiratory distress [Recovered/Resolved]
  - Aggression [Recovered/Resolved]
  - Neutrophil count abnormal [Unknown]
  - Death [Fatal]
  - Granulocytopenia [Unknown]

NARRATIVE: CASE EVENT DATE: 201910
